FAERS Safety Report 7878405-6 (Version None)
Quarter: 2011Q4

REPORT INFORMATION
  Report Type: 
  Country: None (occurrence: None)
  Receive Date: 20111028
  Receipt Date: 20111017
  Transmission Date: 20120403
  Serious: Yes (Hospitalization, Other)
  Sender: FDA-Public Use
  Company Number: JPI-P-017716

PATIENT
  Age: 48 Year
  Sex: Male
  Weight: 77.1115 kg

DRUGS (1)
  1. XYREM [Suspect]
     Indication: INSOMNIA
     Dosage: ORAL ; 9 GM (4.5 GM,2 IN 1 D),ORAL
     Route: 048
     Dates: start: 20070712

REACTIONS (2)
  - ABSCESS LIMB [None]
  - LIMB INJURY [None]
